FAERS Safety Report 14108875 (Version 5)
Quarter: 2017Q4

REPORT INFORMATION
  Report Type: Report from Study
  Country: US (occurrence: US)
  Receive Date: 20171019
  Receipt Date: 20171127
  Transmission Date: 20180321
  Serious: Yes (Hospitalization, Other)
  Sender: FDA-Public Use
  Company Number: US-GILEAD-2017-0293760

PATIENT
  Age: 9 Year
  Sex: Female
  Weight: 36.6 kg

DRUGS (8)
  1. ADCIRCA [Concomitant]
     Active Substance: TADALAFIL
  2. IMODIUM AD [Concomitant]
     Active Substance: LOPERAMIDE HYDROCHLORIDE
  3. AMBRISENTAN [Suspect]
     Active Substance: AMBRISENTAN
     Indication: PULMONARY ARTERIAL HYPERTENSION
     Dosage: 5 MG, QD
     Route: 048
     Dates: start: 20150312
  4. WARFARIN [Concomitant]
     Active Substance: WARFARIN
  5. FERROUS SULFATE. [Concomitant]
     Active Substance: FERROUS SULFATE
  6. DIGOXIN. [Concomitant]
     Active Substance: DIGOXIN
  7. MVI                                /01825701/ [Concomitant]
     Active Substance: VITAMINS
  8. REMODULIN [Concomitant]
     Active Substance: TREPROSTINIL

REACTIONS (11)
  - Chills [Recovering/Resolving]
  - Oxygen saturation decreased [Recovered/Resolved]
  - Cough [Recovered/Resolved]
  - Device breakage [Not Recovered/Not Resolved]
  - Pyrexia [Recovering/Resolving]
  - Dizziness [Recovered/Resolved]
  - Off label use [Not Recovered/Not Resolved]
  - Complication associated with device [Recovered/Resolved]
  - Heart rate decreased [Recovered/Resolved]
  - Oxygen saturation decreased [Recovered/Resolved]
  - Dizziness [Recovered/Resolved]

NARRATIVE: CASE EVENT DATE: 20150312
